FAERS Safety Report 12264132 (Version 1)
Quarter: 2016Q2

REPORT INFORMATION
  Report Type: Spontaneous
  Country: US (occurrence: US)
  Receive Date: 20160413
  Receipt Date: 20160413
  Transmission Date: 20160815
  Serious: No
  Sender: FDA-Public Use
  Company Number: US-JNJFOC-20160314604

PATIENT
  Age: 31 Year
  Sex: Female
  Weight: 68.04 kg

DRUGS (6)
  1. CLARITIN [Concomitant]
     Active Substance: LORATADINE
     Indication: HYPERSENSITIVITY
     Dosage: 10 MG DAILY
     Route: 065
  2. ZOLOFT [Concomitant]
     Active Substance: SERTRALINE HYDROCHLORIDE
     Indication: ANXIETY
     Dosage: 50 MG DAILY.
     Route: 065
     Dates: start: 201602
  3. MOTRIN [Suspect]
     Active Substance: IBUPROFEN
     Route: 065
  4. MOTRIN [Suspect]
     Active Substance: IBUPROFEN
     Indication: SCOLIOSIS
     Dosage: 400 ONCE A DAY AT NIGHT
     Route: 065
  5. ZOLOFT [Concomitant]
     Active Substance: SERTRALINE HYDROCHLORIDE
     Indication: SCOLIOSIS
     Dosage: 50 MG DAILY.
     Route: 065
     Dates: start: 201602
  6. ZOLOFT [Concomitant]
     Active Substance: SERTRALINE HYDROCHLORIDE
     Indication: DEPRESSION
     Dosage: 50 MG DAILY.
     Route: 065
     Dates: start: 201602

REACTIONS (2)
  - Off label use [Unknown]
  - Drug ineffective for unapproved indication [Unknown]
